FAERS Safety Report 5897809-4 (Version None)
Quarter: 2008Q3

REPORT INFORMATION
  Report Type: 
  Country: None (occurrence: None)
  Receive Date: 20080924
  Receipt Date: 20080924
  Transmission Date: 20090109
  Serious: Yes (Hospitalization)
  Sender: FDA-Public Use
  Company Number: None

PATIENT
  Sex: Female
  Weight: 76 kg

DRUGS (2)
  1. EXENATIDE 0.25MG AMYLIN [Suspect]
     Indication: TYPE 2 DIABETES MELLITUS
     Dosage: 10MCG BID SQ
     Route: 058
     Dates: start: 20071119, end: 20080907
  2. PLACEBO AMYLIN [Suspect]
     Dosage: 10MCG BID SQ
     Route: 058

REACTIONS (3)
  - URETERIC STENOSIS [None]
  - URINARY RETENTION [None]
  - URINARY TRACT INFECTION [None]
